FAERS Safety Report 18557947 (Version 1)
Quarter: 2020Q4

REPORT INFORMATION
  Report Type: Spontaneous
  Country: NL (occurrence: NL)
  Receive Date: 20201130
  Receipt Date: 20201130
  Transmission Date: 20210114
  Serious: Yes (Other)
  Sender: FDA-Public Use
  Company Number: NL-AUROBINDO-AUR-APL-2014-08487

PATIENT
  Age: 47 Year
  Sex: Female

DRUGS (4)
  1. LISINOPRIL ACTAVIS 20MG [Suspect]
     Active Substance: LISINOPRIL
     Dosage: 20 MILLIGRAM, ONCE A DAY
  2. LISINOPRIL ACTAVIS 20MG [Suspect]
     Active Substance: LISINOPRIL
     Dosage: 20 MILLIGRAM, ONCE A DAY
  3. ORAL CONTRACEPTIVE NOS [Concomitant]
     Active Substance: UNSPECIFIED INGREDIENT
     Indication: CONTRACEPTION
     Route: 048
  4. LISINOPRIL ACTAVIS 20MG [Suspect]
     Active Substance: LISINOPRIL
     Indication: BLOOD PRESSURE MANAGEMENT
     Dosage: 1 DF, DAILY

REACTIONS (2)
  - Blood pressure increased [Recovered/Resolved]
  - Product substitution issue [Recovered/Resolved]

NARRATIVE: CASE EVENT DATE: 20140611
